FAERS Safety Report 6904537-2 (Version None)
Quarter: 2010Q3

REPORT INFORMATION
  Report Type: 
  Country: None (occurrence: None)
  Receive Date: 20100804
  Receipt Date: 20090608
  Transmission Date: 20110219
  Serious: No
  Sender: FDA-Public Use
  Company Number: US-PFIZER INC-2009197478

PATIENT
  Sex: Male
  Weight: 89.796 kg

DRUGS (4)
  1. LYRICA [Suspect]
     Indication: PAIN
     Dosage: UNK
     Route: 048
     Dates: start: 20090323
  2. GABAPENTIN [Suspect]
  3. NIFEDIPINE [Concomitant]
  4. METOPROLOL [Concomitant]

REACTIONS (4)
  - ABNORMAL BEHAVIOUR [None]
  - DEPRESSION [None]
  - DYSSTASIA [None]
  - VISUAL ACUITY REDUCED [None]
